FAERS Safety Report 24604642 (Version 1)
Quarter: 2024Q4

REPORT INFORMATION
  Report Type: Report from Study
  Country: IT (occurrence: IT)
  Receive Date: 20241111
  Receipt Date: 20241111
  Transmission Date: 20250115
  Serious: Yes (Other)
  Sender: JOHNSON AND JOHNSON
  Company Number: IT-JNJFOC-20241112123

PATIENT

DRUGS (7)
  1. REMICADE [Suspect]
     Active Substance: INFLIXIMAB
     Indication: Psoriasis
     Route: 041
  2. STELARA [Suspect]
     Active Substance: USTEKINUMAB
     Indication: Psoriasis
     Route: 058
  3. SIMPONI [Suspect]
     Active Substance: GOLIMUMAB
     Indication: Psoriasis
     Route: 058
  4. TREMFYA [Suspect]
     Active Substance: GUSELKUMAB
     Indication: Psoriasis
     Route: 065
  5. TREMFYA [Suspect]
     Active Substance: GUSELKUMAB
  6. TREMFYA [Suspect]
     Active Substance: GUSELKUMAB
  7. TREMFYA [Suspect]
     Active Substance: GUSELKUMAB

REACTIONS (25)
  - Pneumonia [Unknown]
  - Carcinoembryonic antigen increased [Unknown]
  - Asthenia [Unknown]
  - Administration site reaction [Unknown]
  - Oedema peripheral [Unknown]
  - Pyrexia [Unknown]
  - Folliculitis [Unknown]
  - Rash [Unknown]
  - Vertigo [Unknown]
  - Headache [Unknown]
  - Candida infection [Unknown]
  - Herpes virus infection [Unknown]
  - Nasopharyngitis [Unknown]
  - Dyspnoea [Unknown]
  - Transaminases increased [Unknown]
  - Full blood count abnormal [Unknown]
  - Haemoglobin decreased [Unknown]
  - Lymphocytosis [Unknown]
  - Anaemia [Unknown]
  - Gingivitis [Unknown]
  - Nausea [Unknown]
  - Allergic reaction to excipient [Unknown]
  - Haematuria [Unknown]
  - Limb discomfort [Unknown]
  - Back pain [Unknown]
